FAERS Safety Report 11164085 (Version 2)
Quarter: 2015Q3

REPORT INFORMATION
  Report Type: Report from Study
  Country: US (occurrence: US)
  Receive Date: 20150604
  Receipt Date: 20150813
  Transmission Date: 20151125
  Serious: Yes (Other)
  Sender: FDA-Public Use
  Company Number: US-SA-2014SA071498

PATIENT
  Age: 46 Year
  Sex: Female
  Weight: 68.03 kg

DRUGS (4)
  1. AUBAGIO [Suspect]
     Active Substance: TERIFLUNOMIDE
     Indication: SECONDARY PROGRESSIVE MULTIPLE SCLEROSIS
     Route: 048
     Dates: start: 20140501
  2. TIZANIDINE. [Concomitant]
     Active Substance: TIZANIDINE
     Indication: MUSCLE SPASMS
  3. AUBAGIO [Suspect]
     Active Substance: TERIFLUNOMIDE
     Indication: RELAPSING-REMITTING MULTIPLE SCLEROSIS
     Route: 048
     Dates: start: 20140501
  4. TRILEPTAL [Concomitant]
     Active Substance: OXCARBAZEPINE
     Indication: SEIZURE
     Dates: start: 2012

REACTIONS (11)
  - Sluggishness [Unknown]
  - Urinary tract infection [Unknown]
  - Fatigue [Unknown]
  - Alopecia [Recovering/Resolving]
  - Diarrhoea [Recovered/Resolved]
  - Wheelchair user [Unknown]
  - Secondary progressive multiple sclerosis [Unknown]
  - Asthenia [Unknown]
  - Urine odour abnormal [Unknown]
  - Incontinence [Unknown]
  - Contusion [Unknown]

NARRATIVE: CASE EVENT DATE: 201406
